FAERS Safety Report 8400261 (Version 2)
Quarter: 2013Q1

REPORT INFORMATION
  Report Type: Spontaneous
  Country: US (occurrence: US)
  Receive Date: 20120210
  Receipt Date: 20130219
  Transmission Date: 20140127
  Serious: No
  Sender: FDA-Public Use
  Company Number: US-BRISTOL-MYERS SQUIBB COMPANY-16296253

PATIENT
  Age: 60 Year
  Sex: Male

DRUGS (7)
  1. ORENCIA [Suspect]
     Indication: RHEUMATOID ARTHRITIS
     Route: 042
     Dates: start: 20111018
  2. ORENCIA [Suspect]
     Indication: PSORIATIC ARTHROPATHY
     Route: 042
     Dates: start: 20111018
  3. PREDNISONE [Concomitant]
  4. GLUCOPHAGE [Concomitant]
  5. METHOTREXATE [Concomitant]
  6. LYRICA [Concomitant]
  7. INDOCIN [Concomitant]

REACTIONS (2)
  - Fatigue [Unknown]
  - Joint swelling [Unknown]
